FAERS Safety Report 6441433-1 (Version None)
Quarter: 2009Q4

REPORT INFORMATION
  Report Type: 
  Country: None (occurrence: None)
  Receive Date: 20091116
  Receipt Date: 20091111
  Transmission Date: 20100525
  Serious: Yes (Other)
  Sender: FDA-Public Use
  Company Number: A0758152A

PATIENT
  Age: 69 Year
  Sex: Male
  Weight: 103.6 kg

DRUGS (4)
  1. AVANDIA [Suspect]
     Indication: TYPE 2 DIABETES MELLITUS
     Dosage: 4MG TWICE PER DAY
     Route: 048
     Dates: start: 20020701, end: 20070501
  2. AVANDAMET [Suspect]
     Indication: TYPE 2 DIABETES MELLITUS
     Dosage: 4MG TWICE PER DAY
     Route: 048
     Dates: start: 20020701, end: 20070501
  3. ALTACE [Concomitant]
  4. PLAVIX [Concomitant]

REACTIONS (8)
  - AORTIC VALVE SCLEROSIS [None]
  - CEREBROVASCULAR ACCIDENT [None]
  - DIABETIC NEUROPATHY [None]
  - LEFT VENTRICULAR HYPERTROPHY [None]
  - MITRAL VALVE CALCIFICATION [None]
  - MITRAL VALVE INCOMPETENCE [None]
  - PERIPHERAL SENSORY NEUROPATHY [None]
  - TRICUSPID VALVE INCOMPETENCE [None]
